FAERS Safety Report 12776454 (Version 3)
Quarter: 2017Q2

REPORT INFORMATION
  Report Type: Spontaneous
  Country: US (occurrence: US)
  Receive Date: 20160923
  Receipt Date: 20170418
  Transmission Date: 20170830
  Serious: No
  Sender: FDA-Public Use
  Company Number: US-TEVA-688837ACC

PATIENT
  Age: 39 Year
  Sex: Female
  Weight: 53.12 kg

DRUGS (2)
  1. PARAGARD T 380A [Suspect]
     Active Substance: COPPER
     Indication: CONTRACEPTION
     Dates: start: 20160818, end: 20160818
  2. PARAGARD T 380A [Suspect]
     Active Substance: COPPER
     Dates: start: 20160825

REACTIONS (2)
  - Muscle spasms [Unknown]
  - Device expulsion [Recovered/Resolved]

NARRATIVE: CASE EVENT DATE: 20160818
